FAERS Safety Report 6314063-X (Version None)
Quarter: 2009Q3

REPORT INFORMATION
  Report Type: 
  Country: None (occurrence: None)
  Receive Date: 20090814
  Receipt Date: 20090730
  Transmission Date: 20100115
  Serious: Yes (Hospitalization)
  Sender: FDA-Public Use
  Company Number: 8050003

PATIENT
  Age: 20 Year
  Sex: Male

DRUGS (8)
  1. KEPPRA [Suspect]
     Indication: CONVULSION
     Dosage: 500 MG 2/D IV
     Route: 042
     Dates: start: 20090522, end: 20090602
  2. NEDSONAL [Concomitant]
  3. ERYTHROMICINE [Concomitant]
  4. TIENAM [Concomitant]
  5. TAVANIC [Concomitant]
  6. MIDAZOLAM HCL [Concomitant]
  7. SUFENTA [Concomitant]
  8. ACETAMINOPHEN [Concomitant]

REACTIONS (3)
  - AGRANULOCYTOSIS [None]
  - HEAD INJURY [None]
  - ROAD TRAFFIC ACCIDENT [None]
